FAERS Safety Report 20676107 (Version 1)
Quarter: 2022Q2

REPORT INFORMATION
  Report Type: Spontaneous
  Country: US (occurrence: US)
  Receive Date: 20220405
  Receipt Date: 20220405
  Transmission Date: 20220721
  Serious: No
  Sender: FDA-Public Use
  Company Number: US-PFIZER INC-2021778175

PATIENT
  Age: 89 Year
  Sex: Male

DRUGS (1)
  1. BOSUTINIB [Suspect]
     Active Substance: BOSUTINIB
     Indication: Leukaemia
     Dosage: 500 MG
     Dates: start: 201605

REACTIONS (1)
  - General physical condition abnormal [Unknown]
